FAERS Safety Report 10993319 (Version 1)
Quarter: 2015Q2

REPORT INFORMATION
  Report Type: Other
  Country: DE (occurrence: DE)
  Receive Date: 20150407
  Receipt Date: 20150407
  Transmission Date: 20150821
  Serious: Yes (Death, Life-Threatening, Congenital Anomaly)
  Sender: FDA-Public Use
  Company Number: DE-LUPIN PHARMACEUTICALS INC.-E2B_00003371

PATIENT
  Age: 0 Day
  Sex: Male
  Weight: 2.91 kg

DRUGS (3)
  1. YASMIN [Concomitant]
     Active Substance: DROSPIRENONE\ETHINYL ESTRADIOL
     Indication: ORAL CONTRACEPTION
     Dosage: 0.03/3MG
     Route: 064
  2. FOLSAEURE [Concomitant]
     Active Substance: FOLIC ACID
     Indication: PROPHYLAXIS OF NEURAL TUBE DEFECT
     Route: 064
  3. LAMOTRIGINE. [Suspect]
     Active Substance: LAMOTRIGINE
     Indication: EPILEPSY
     Dosage: 300 MG/D (100-0-200MG/D)
     Route: 064
     Dates: start: 20131224, end: 20140911

REACTIONS (10)
  - Ventricular septal defect [Fatal]
  - Atrial septal defect [Fatal]
  - Death neonatal [Fatal]
  - Anomalous pulmonary venous connection [Fatal]
  - Peritoneal dialysis [None]
  - Anuria [None]
  - Lactic acidosis [None]
  - Caesarean section [None]
  - Foetal exposure during pregnancy [Unknown]
  - Double outlet right ventricle [Fatal]

NARRATIVE: CASE EVENT DATE: 20140911
